FAERS Safety Report 5592067-2 (Version None)
Quarter: 2008Q1

REPORT INFORMATION
  Report Type: 
  Country: None (occurrence: None)
  Receive Date: 20080115
  Receipt Date: 20071119
  Transmission Date: 20080703
  Serious: No
  Sender: FDA-Public Use
  Company Number: US-ABBOTT-07P-163-0378872-00

PATIENT
  Sex: Female
  Weight: 55.388 kg

DRUGS (7)
  1. ADVICOR [Suspect]
     Indication: BLOOD CHOLESTEROL
     Dosage: 500/20
     Route: 048
     Dates: start: 20070802
  2. LEVOTHYROXINE SODIUM [Concomitant]
     Indication: THYROID DISORDER
     Route: 048
  3. NORLESTRIN FE [Concomitant]
     Indication: CONTRACEPTION
  4. M.V.I. [Concomitant]
     Indication: DRUG USE FOR UNKNOWN INDICATION
  5. CALCIUM-SANDOZ [Concomitant]
     Indication: DRUG USE FOR UNKNOWN INDICATION
  6. FISH OIL [Concomitant]
     Indication: DRUG USE FOR UNKNOWN INDICATION
  7. TOCOPHEROL CONCENTRATE CAP [Concomitant]
     Indication: DRUG USE FOR UNKNOWN INDICATION

REACTIONS (2)
  - FLUSHING [None]
  - SKIN BURNING SENSATION [None]
